FAERS Safety Report 5643901-9 (Version None)
Quarter: 2008Q1

REPORT INFORMATION
  Report Type: 
  Country: None (occurrence: None)
  Receive Date: 20080226
  Receipt Date: 20080214
  Transmission Date: 20080703
  Serious: Yes (Death)
  Sender: FDA-Public Use
  Company Number: HCDA20080001

PATIENT
  Age: 28 Year
  Sex: Female

DRUGS (4)
  1. ACETAMINOPHEN AND HYDROCODONE BITARTRATE [Suspect]
     Indication: BACK INJURY
     Dates: start: 20060101, end: 20060101
  2. ACETAMINOPHEN [Suspect]
     Indication: BACK INJURY
     Dosage: 27 TABLETS, ONCE, ORAL
     Route: 048
     Dates: start: 20060101, end: 20060101
  3. HYDROMORPHONE HCL [Suspect]
     Indication: BACK INJURY
     Dates: start: 20060101, end: 20060101
  4. IBUPROFEN [Suspect]
     Indication: BACK INJURY
     Dates: start: 20060101, end: 20060101

REACTIONS (18)
  - ABNORMAL BEHAVIOUR [None]
  - ABORTION SPONTANEOUS [None]
  - ALCOHOL USE [None]
  - CARDIO-RESPIRATORY ARREST [None]
  - DISORIENTATION [None]
  - DISSEMINATED INTRAVASCULAR COAGULATION [None]
  - DRUG DEPENDENCE [None]
  - DRUG TOXICITY [None]
  - HAEMORRHAGIC DIATHESIS [None]
  - HEART RATE INCREASED [None]
  - HEPATIC NECROSIS [None]
  - PULMONARY CONGESTION [None]
  - PULMONARY OEDEMA [None]
  - RENAL TUBULAR NECROSIS [None]
  - SEPSIS [None]
  - SPLENITIS [None]
  - SWELLING [None]
  - UNRESPONSIVE TO STIMULI [None]
